FAERS Safety Report 5268186-7 (Version None)
Quarter: 2007Q1

REPORT INFORMATION
  Report Type: 
  Country: None (occurrence: None)
  Receive Date: 20070314
  Receipt Date: 20070314
  Transmission Date: 20070707
  Serious: Yes (Hospitalization)
  Sender: FDA-Public Use
  Company Number: None

PATIENT
  Sex: Female
  Weight: 58.6 kg

DRUGS (7)
  1. DOCETAXEL 57.6MG (SANOFI-AVENTIS) [Suspect]
     Indication: OVARIAN CANCER
     Dosage: 36MG/M2 (57.6 MG) WEEKLY X 3 WKS IV
     Route: 042
     Dates: start: 20070301
  2. DOCETAXEL 57.6MG (SANOFI-AVENTIS) [Suspect]
     Indication: OVARIAN CANCER
     Dosage: 36MG/M2 (57.6 MG) WEEKLY X 3 WKS IV
     Route: 042
     Dates: start: 20070307
  3. LONAFARNIB 150 MG (SCHERING-PLOUGH) [Suspect]
     Indication: CHEMOTHERAPY
     Dosage: 150 MG 2 X DAY PO
     Route: 048
     Dates: start: 20070224
  4. PROZAC [Concomitant]
  5. DECADRON [Concomitant]
  6. PHENERGAN HCL [Concomitant]
  7. OXYCODONE HCL [Concomitant]

REACTIONS (13)
  - ABDOMINAL PAIN [None]
  - ALANINE AMINOTRANSFERASE ABNORMAL [None]
  - ASTHENIA [None]
  - BLOOD ALKALINE PHOSPHATASE ABNORMAL [None]
  - BLOOD BILIRUBIN ABNORMAL [None]
  - BLOOD CHLORIDE ABNORMAL [None]
  - BLOOD GLUCOSE ABNORMAL [None]
  - BLOOD LACTATE DEHYDROGENASE ABNORMAL [None]
  - BLOOD SODIUM ABNORMAL [None]
  - BLOOD UREA ABNORMAL [None]
  - NAUSEA [None]
  - VOMITING [None]
  - WHITE BLOOD CELL COUNT ABNORMAL [None]
